FAERS Safety Report 16167279 (Version 1)
Quarter: 2019Q2

REPORT INFORMATION
  Report Type: Spontaneous
  Country: CA (occurrence: CA)
  Receive Date: 20190408
  Receipt Date: 20190408
  Transmission Date: 20190711
  Serious: Yes (Other)
  Sender: FDA-Public Use
  Company Number: CA-ROCHE-2298193

PATIENT
  Age: 21 Year
  Sex: Male

DRUGS (8)
  1. XOLAIR [Suspect]
     Active Substance: OMALIZUMAB
     Route: 058
     Dates: start: 20180314
  2. XOLAIR [Suspect]
     Active Substance: OMALIZUMAB
     Indication: CHRONIC SPONTANEOUS URTICARIA
     Route: 058
     Dates: start: 20140131
  3. XOLAIR [Suspect]
     Active Substance: OMALIZUMAB
     Route: 058
     Dates: start: 20180214
  4. XOLAIR [Suspect]
     Active Substance: OMALIZUMAB
     Route: 058
     Dates: start: 20170126
  5. XOLAIR [Suspect]
     Active Substance: OMALIZUMAB
     Route: 058
     Dates: start: 20180607
  6. XOLAIR [Suspect]
     Active Substance: OMALIZUMAB
     Route: 058
  7. XOLAIR [Suspect]
     Active Substance: OMALIZUMAB
     Route: 058
     Dates: start: 20170606
  8. XOLAIR [Suspect]
     Active Substance: OMALIZUMAB
     Route: 058
     Dates: start: 20170926, end: 20170926

REACTIONS (17)
  - Dyspnoea [Recovered/Resolved]
  - Heart rate increased [Unknown]
  - Nasal discharge discolouration [Unknown]
  - Clostridium difficile infection [Unknown]
  - Nasopharyngitis [Unknown]
  - Nonspecific reaction [Unknown]
  - Swelling face [Unknown]
  - Psoriasis [Unknown]
  - Blister [Unknown]
  - Lip swelling [Unknown]
  - Pruritus [Unknown]
  - Oropharyngeal plaque [Unknown]
  - Skin plaque [Unknown]
  - Urticaria [Not Recovered/Not Resolved]
  - Sensitivity to weather change [Unknown]
  - Erythema [Unknown]
  - Pain [Unknown]

NARRATIVE: CASE EVENT DATE: 20170406
